FAERS Safety Report 4806469-2 (Version None)
Quarter: 2005Q4

REPORT INFORMATION
  Report Type: 
  Country: None (occurrence: None)
  Receive Date: 20051021
  Receipt Date: 20051011
  Transmission Date: 20060501
  Serious: Yes (Hospitalization)
  Sender: FDA-Public Use
  Company Number: JP-GILEAD-2005-0008811

PATIENT
  Sex: Female

DRUGS (11)
  1. VIREAD [Suspect]
     Indication: HIV INFECTION
     Route: 048
     Dates: start: 20040726
  2. PREDNISOLONE [Suspect]
     Indication: NEUROPATHY PERIPHERAL
     Route: 048
     Dates: start: 20041130, end: 20041227
  3. PREDNISOLONE [Suspect]
     Route: 048
     Dates: start: 20040929, end: 20041129
  4. PREDNISOLONE [Suspect]
     Route: 048
     Dates: start: 20040914, end: 20040928
  5. PREDNISOLONE [Suspect]
     Route: 048
     Dates: start: 20040726, end: 20040913
  6. EPIVIR [Concomitant]
     Indication: HIV INFECTION
     Dates: start: 20040726
  7. STOCRIN [Concomitant]
     Indication: HIV INFECTION
     Dates: start: 20040726
  8. COTRIM [Concomitant]
     Dates: start: 20040726
  9. ONEALFA [Concomitant]
     Dates: start: 20040726
  10. GASTER [Concomitant]
     Dates: start: 20040726
  11. AMOBAN [Concomitant]
     Dates: start: 20040726

REACTIONS (1)
  - THORACIC VERTEBRAL FRACTURE [None]
